FAERS Safety Report 7283754-9 (Version None)
Quarter: 2011Q1

REPORT INFORMATION
  Report Type: 
  Country: None (occurrence: None)
  Receive Date: 20110209
  Receipt Date: 20110203
  Transmission Date: 20110831
  Serious: Yes (Hospitalization, Other)
  Sender: FDA-Public Use
  Company Number: US-BAYER-2011-011540

PATIENT
  Age: 78 Year
  Sex: Male

DRUGS (3)
  1. CIPRO [Suspect]
     Dosage: UNK, ONCE
     Dates: start: 20100401, end: 20100401
  2. ZETIA [Concomitant]
  3. DIOVAN [Concomitant]

REACTIONS (1)
  - SYNCOPE [None]
